FAERS Safety Report 7835036 (Version 2)
Quarter: 2013Q4

REPORT INFORMATION
  Report Type: Spontaneous
  Country: US (occurrence: US)
  Receive Date: 20110301
  Receipt Date: 20131127
  Transmission Date: 20140711
  Serious: Yes (Hospitalization, Other)
  Sender: FDA-Public Use
  Company Number: US-ROCHE-734036

PATIENT
  Age: 16 Year
  Sex: Male
  Weight: 56.7 kg

DRUGS (1)
  1. ACCUTANE [Suspect]
     Indication: ACNE
     Route: 065
     Dates: start: 200802, end: 200807

REACTIONS (16)
  - Crohn^s disease [Unknown]
  - Gastrointestinal injury [Unknown]
  - Intestinal haemorrhage [Unknown]
  - Inflammatory bowel disease [Unknown]
  - Depression [Unknown]
  - Back pain [Unknown]
  - Arthralgia [Unknown]
  - Bone disorder [Unknown]
  - Blood cholesterol increased [Unknown]
  - Blood triglycerides increased [Unknown]
  - Oral herpes [Unknown]
  - Epistaxis [Unknown]
  - Blood urine present [Unknown]
  - Haematochezia [Unknown]
  - Abdominal pain upper [Unknown]
  - Vomiting [Unknown]
